FAERS Safety Report 6644353-2 (Version None)
Quarter: 2010Q1

REPORT INFORMATION
  Report Type: 
  Country: None (occurrence: None)
  Receive Date: 20100322
  Receipt Date: 20100319
  Transmission Date: 20100710
  Serious: Yes (Life-Threatening, Hospitalization, Other)
  Sender: FDA-Public Use
  Company Number: PHEH2008US05593

PATIENT
  Sex: Male
  Weight: 58.5 kg

DRUGS (29)
  1. ZOMETA [Suspect]
     Dosage: MONTHLY
  2. THEOPHYLLINE [Concomitant]
     Dosage: 300 MG TABLETS
  3. FLOVENT [Concomitant]
     Dosage: 11O MCG
  4. CELEBREX [Concomitant]
     Dosage: 200 MG CAPSULES
  5. WARFARIN SODIUM [Concomitant]
     Dosage: 5 MG TABLETS
  6. PRAVACHOL [Concomitant]
     Dosage: 80 MG TABLETS
  7. ALBUTEROL [Concomitant]
     Dosage: 90 MCG
  8. ATROVENT [Concomitant]
     Dosage: UNK
  9. CIMETIDINE [Concomitant]
     Dosage: 300 MG TABLETS
  10. DEXAMETHASONE [Concomitant]
     Dosage: 4 MG TABLETS
  11. VIOXX [Concomitant]
     Dosage: 50 MG TABLETS
  12. PREDNISONE [Concomitant]
     Dosage: UNK
  13. BUSPAR [Concomitant]
     Dosage: UNK
  14. ZOCOR [Concomitant]
     Dosage: UNK
  15. ARANESP [Concomitant]
     Dosage: UNK
  16. OXYCONTIN [Concomitant]
     Dosage: 20 MG, TWICE DAILY
  17. THALIDOMIDE [Concomitant]
     Dosage: UNK
  18. RADIATION THERAPY [Concomitant]
     Dosage: UNK
  19. COLACE [Concomitant]
     Dosage: UNK
  20. LORTAB [Concomitant]
  21. SORBITOL [Concomitant]
  22. TAGAMET [Concomitant]
  23. ZANTAC [Concomitant]
  24. FOSAMAX [Concomitant]
  25. NICOTINE [Concomitant]
  26. OXYGEN THERAPY [Concomitant]
  27. DECADRON [Concomitant]
  28. VELCADE [Concomitant]
  29. SENOKOT                                 /UNK/ [Concomitant]

REACTIONS (54)
  - ABDOMINAL PAIN [None]
  - ANHEDONIA [None]
  - ANXIETY [None]
  - ARTHRITIS [None]
  - ASTHMA [None]
  - ATELECTASIS [None]
  - BONE DISORDER [None]
  - BRONCHITIS [None]
  - CARDIOVASCULAR DISORDER [None]
  - CATARACT [None]
  - CHEST TUBE INSERTION [None]
  - CHRONIC OBSTRUCTIVE PULMONARY DISEASE [None]
  - CONSTIPATION [None]
  - DENTAL CARIES [None]
  - DIVERTICULUM [None]
  - DYSPNOEA [None]
  - EDENTULOUS [None]
  - GINGIVAL BLEEDING [None]
  - HIATUS HERNIA [None]
  - HYPERCALCAEMIA [None]
  - HYPERCHOLESTEROLAEMIA [None]
  - HYPERTENSION [None]
  - INJURY [None]
  - LUNG DISORDER [None]
  - MASS [None]
  - MITRAL VALVE INCOMPETENCE [None]
  - MULTIPLE MYELOMA [None]
  - MUSCULOSKELETAL CHEST PAIN [None]
  - NAUSEA [None]
  - NECK INJURY [None]
  - OEDEMA MOUTH [None]
  - OSTEONECROSIS [None]
  - OSTEOPOROSIS [None]
  - PAIN [None]
  - PAIN IN JAW [None]
  - PLASMACYTOMA [None]
  - PLEURAL EFFUSION [None]
  - PNEUMONIA [None]
  - PNEUMOTHORAX SPONTANEOUS TENSION [None]
  - PULMONARY HILUM MASS [None]
  - PULMONARY OEDEMA [None]
  - RECTAL HAEMORRHAGE [None]
  - RESUSCITATION [None]
  - RIB FRACTURE [None]
  - SPINAL CORPECTOMY [None]
  - SPINAL DISORDER [None]
  - SPINAL OSTEOARTHRITIS [None]
  - SUBCUTANEOUS EMPHYSEMA [None]
  - SURGERY [None]
  - TINNITUS [None]
  - TOOTH EXTRACTION [None]
  - ULCER [None]
  - UPPER RESPIRATORY TRACT INFECTION [None]
  - VOMITING [None]
